FAERS Safety Report 5332264-4 (Version None)
Quarter: 2007Q2

REPORT INFORMATION
  Report Type: 
  Country: None (occurrence: None)
  Receive Date: 20070523
  Receipt Date: 20070511
  Transmission Date: 20071010
  Serious: Yes (Hospitalization, Other)
  Sender: FDA-Public Use
  Company Number: US-BAYER-200711477BWH

PATIENT
  Sex: Male

DRUGS (5)
  1. AVELOX [Suspect]
     Indication: BRONCHITIS
     Route: 048
     Dates: start: 20070401
  2. PHENERGAN EXPECTORANT W/ CODEINE [Suspect]
     Indication: COUGH
  3. OMEPRAZOLE [Concomitant]
  4. INHALERS (NOS) [Concomitant]
  5. SINGULAIR [Concomitant]

REACTIONS (7)
  - ATRIAL FIBRILLATION [None]
  - BLOOD CALCIUM DECREASED [None]
  - CONFUSIONAL STATE [None]
  - CONTUSION [None]
  - ELECTROCARDIOGRAM QT PROLONGED [None]
  - MUSCULOSKELETAL CHEST PAIN [None]
  - SYNCOPE [None]
